FAERS Safety Report 7386089-9 (Version None)
Quarter: 2011Q1

REPORT INFORMATION
  Report Type: 
  Country: None (occurrence: None)
  Receive Date: 20110329
  Receipt Date: 20110329
  Transmission Date: 20110831
  Serious: Yes (Other)
  Sender: FDA-Public Use
  Company Number: None

PATIENT
  Age: 57 Year
  Sex: Female
  Weight: 103.8737 kg

DRUGS (11)
  1. SEROQUEL [Concomitant]
  2. DIAZEPAM [Concomitant]
  3. INVEGA [Suspect]
     Indication: HOSPITALISATION
     Dosage: 9 MG DAILY PO
     Route: 048
     Dates: start: 20110113, end: 20110131
  4. NEXIUM [Concomitant]
  5. EMSAM [Concomitant]
  6. MOBIC [Concomitant]
  7. ZOLPIDEM [Concomitant]
  8. PULMICORT [Concomitant]
  9. SINGULAIR [Concomitant]
  10. ARICEPT [Concomitant]
  11. SYNTHROID [Concomitant]

REACTIONS (1)
  - PARKINSONISM [None]
